FAERS Safety Report 5293849-7 (Version None)
Quarter: 2007Q2

REPORT INFORMATION
  Report Type: 
  Country: None (occurrence: None)
  Receive Date: 20070411
  Receipt Date: 20070409
  Transmission Date: 20071010
  Serious: Yes (Disabling)
  Sender: FDA-Public Use
  Company Number: US-MERCK-0703USA03744

PATIENT
  Age: 61 Year
  Sex: Female
  Weight: 84 kg

DRUGS (24)
  1. FOSAMAX [Suspect]
     Indication: OSTEOPOROSIS
     Route: 048
     Dates: end: 20060101
  2. AMITRIPTYLINE HYDROCHLORIDE [Concomitant]
     Route: 048
  3. LIPITOR [Concomitant]
     Route: 048
  4. LUMIGAN [Concomitant]
     Route: 047
  5. CALCIUM CARBONATE [Concomitant]
     Route: 048
  6. CYANOCOBALAMIN [Concomitant]
     Route: 048
  7. VITAMINS (UNSPECIFIED) [Concomitant]
     Route: 048
  8. COLACE [Concomitant]
     Route: 048
  9. DRISDOL [Concomitant]
     Route: 048
  10. FOLIC ACID [Concomitant]
     Route: 048
  11. VICODIN [Concomitant]
     Route: 048
  12. HYDROXYCHLOROQUINE SULFATE [Concomitant]
     Route: 048
  13. REMICADE [Concomitant]
     Route: 042
  14. LEVOXYL [Concomitant]
     Route: 048
  15. LISINOPRIL [Concomitant]
     Route: 048
  16. CLARITIN [Concomitant]
     Route: 048
  17. METHOTREXATE [Concomitant]
     Route: 048
  18. PREDNISONE [Concomitant]
     Route: 048
  19. PREDNISONE [Concomitant]
     Route: 048
  20. EVISTA [Concomitant]
     Route: 048
  21. AVANDIA [Concomitant]
     Route: 048
  22. SULFASALAZINE [Concomitant]
     Route: 048
  23. DETROL LA [Concomitant]
     Route: 048
  24. FORTEO [Concomitant]
     Route: 058

REACTIONS (4)
  - FALL [None]
  - FEMUR FRACTURE [None]
  - SKIN LACERATION [None]
  - STERNAL FRACTURE [None]
